FAERS Safety Report 25794891 (Version 1)
Quarter: 2025Q3

REPORT INFORMATION
  Report Type: Spontaneous
  Country: US (occurrence: US)
  Receive Date: 20250912
  Receipt Date: 20250912
  Transmission Date: 20251021
  Serious: Yes (Other)
  Sender: BIOLOGICAL E. LIMITED
  Company Number: US-BELUSA-2025BELSPO0052

PATIENT

DRUGS (1)
  1. ENOXAPARIN SODIUM [Suspect]
     Active Substance: ENOXAPARIN SODIUM
     Indication: Product used for unknown indication
     Dates: start: 20250817

REACTIONS (4)
  - Injury associated with device [Recovered/Resolved]
  - Accident at work [Unknown]
  - Device malfunction [Unknown]
  - Exposure to contaminated device [Unknown]

NARRATIVE: CASE EVENT DATE: 20250817
